FAERS Safety Report 23480045 (Version 1)
Quarter: 2024Q1

REPORT INFORMATION
  Report Type: Spontaneous
  Country: US (occurrence: US)
  Receive Date: 20240205
  Receipt Date: 20240205
  Transmission Date: 20240410
  Serious: Yes (Hospitalization)
  Sender: FDA-Public Use
  Company Number: US-UCBSA-2024005250

PATIENT
  Age: 32 Year
  Sex: Female

DRUGS (1)
  1. CIMZIA [Suspect]
     Active Substance: CERTOLIZUMAB PEGOL
     Indication: Product used for unknown indication
     Dosage: 400 MILLIGRAM UNK
     Route: 058
     Dates: start: 20231212

REACTIONS (8)
  - Nausea [Recovered/Resolved]
  - Illness [Recovered/Resolved]
  - Back pain [Recovered/Resolved]
  - Ear swelling [Unknown]
  - Erythema [Unknown]
  - Feeling hot [Unknown]
  - Eye swelling [Unknown]
  - Ocular hyperaemia [Unknown]

NARRATIVE: CASE EVENT DATE: 20231212
